FAERS Safety Report 6247064-0 (Version None)
Quarter: 2009Q2

REPORT INFORMATION
  Report Type: 
  Country: None (occurrence: None)
  Receive Date: 20090624
  Receipt Date: 20090624
  Transmission Date: 20091009
  Serious: No
  Sender: FDA-Public Use
  Company Number: None

PATIENT
  Age: 56 Year
  Sex: Female
  Weight: 74 kg

DRUGS (12)
  1. AZACITIDINE [Suspect]
     Indication: ACUTE MYELOID LEUKAEMIA
     Dosage: 75MG/M2 IV QD X 5D
     Route: 042
     Dates: start: 20090424, end: 20090428
  2. SENNA [Concomitant]
  3. PREVACID [Concomitant]
  4. DOCUSATE [Concomitant]
  5. CLARITIN [Concomitant]
  6. DAPSONE [Concomitant]
  7. LEVOFLOX [Concomitant]
  8. LIDOCAINE [Concomitant]
  9. VORICONAZOLE [Concomitant]
  10. PREGABALIN [Concomitant]
  11. FENTANYL [Concomitant]
  12. PREDNISONE [Concomitant]

REACTIONS (3)
  - BLOOD PHOSPHORUS DECREASED [None]
  - MUSCLE SPASMS [None]
  - MUSCLE TWITCHING [None]
